FAERS Safety Report 10060794 (Version 1)
Quarter: 2014Q2

REPORT INFORMATION
  Report Type: Report from Study
  Country: GB (occurrence: GB)
  Receive Date: 20140404
  Receipt Date: 20140404
  Transmission Date: 20141212
  Serious: Yes (Other)
  Sender: FDA-Public Use
  Company Number: GB-BAXTER-2014BAX017061

PATIENT
  Age: 49 Year
  Sex: Female

DRUGS (6)
  1. KIOVIG 100 MG/ML SOLUTION FOR INFUSION [Suspect]
     Indication: NEUROMYELITIS OPTICA
     Dosage: 2 G/KG BODY WEIGHT
     Route: 042
  2. KIOVIG 100 MG/ML SOLUTION FOR INFUSION [Suspect]
     Indication: OFF LABEL USE
  3. RITUXIMAB [Concomitant]
     Indication: IMMUNOSUPPRESSANT DRUG THERAPY
     Route: 065
  4. CYCLOPHOSPHAMIDE [Concomitant]
     Indication: IMMUNOSUPPRESSANT DRUG THERAPY
     Route: 065
  5. METHYLPREDNISOLONE [Concomitant]
     Indication: NEUROMYELITIS OPTICA
     Route: 042
  6. METHYLPREDNISOLONE [Concomitant]
     Route: 048

REACTIONS (1)
  - No therapeutic response [Unknown]
